FAERS Safety Report 12785184 (Version 1)
Quarter: 2016Q3

REPORT INFORMATION
  Report Type: Spontaneous
  Country: FR (occurrence: FR)
  Receive Date: 20160927
  Receipt Date: 20160927
  Transmission Date: 20161109
  Serious: Yes (Hospitalization, Other)
  Sender: FDA-Public Use
  Company Number: FR-009507513-1607FRA010296

PATIENT
  Age: 2 Year
  Sex: Male
  Weight: 15 kg

DRUGS (4)
  1. ZERBAXA [Suspect]
     Active Substance: CEFTOLOZANE SULFATE\TAZOBACTAM SODIUM
     Indication: BACTERIAL INFECTION
     Dosage: 0.5 G, TID
     Route: 042
     Dates: start: 201605
  2. COUMADIN [Concomitant]
     Active Substance: WARFARIN SODIUM
     Dosage: 4 MG/DAY
  3. PROGRAF [Concomitant]
     Active Substance: TACROLIMUS\TACROLIMUS ANHYDROUS
     Indication: IMMUNOSUPPRESSANT DRUG THERAPY
     Dosage: 0.2 MG, BID
  4. COLISTINE [Suspect]
     Active Substance: COLISTIN
     Dosage: 1.5 MIU 3/DAY
     Dates: start: 201605

REACTIONS (1)
  - Clostridium difficile infection [Recovering/Resolving]

NARRATIVE: CASE EVENT DATE: 20160718
